FAERS Safety Report 19618955 (Version 1)
Quarter: 2021Q3

REPORT INFORMATION
  Report Type: Spontaneous
  Country: US (occurrence: US)
  Receive Date: 20210727
  Receipt Date: 20210727
  Transmission Date: 20211014
  Serious: Yes (Hospitalization)
  Sender: FDA-Public Use
  Company Number: US-ROCHE-2788429

PATIENT
  Sex: Female

DRUGS (1)
  1. XELODA [Suspect]
     Active Substance: CAPECITABINE
     Indication: BILE DUCT CANCER
     Dosage: 500 MG TABLET
     Route: 048
     Dates: start: 202101

REACTIONS (4)
  - Diarrhoea [Unknown]
  - Product use in unapproved indication [Unknown]
  - Dehydration [Unknown]
  - Nausea [Unknown]
